FAERS Safety Report 9465677 (Version 2)
Quarter: 2013Q3

REPORT INFORMATION
  Report Type: Report from Study
  Country: BR (occurrence: BR)
  Receive Date: 20130820
  Receipt Date: 20130911
  Transmission Date: 20140515
  Serious: Yes (Death, Life-Threatening)
  Sender: FDA-Public Use
  Company Number: BR-INCYTE CORPORATION-2013IN001833

PATIENT
  Age: 74 Year
  Sex: Male
  Weight: 77.8 kg

DRUGS (1)
  1. INC424 [Suspect]
     Indication: MYELOFIBROSIS
     Dosage: 20 MG, BID
     Route: 048
     Dates: start: 20130709, end: 20130805

REACTIONS (5)
  - Anaemia [Fatal]
  - Sepsis [Fatal]
  - Lung infection [Fatal]
  - Renal failure acute [Fatal]
  - Metabolic acidosis [Not Recovered/Not Resolved]
